FAERS Safety Report 9430571 (Version 1)
Quarter: 2013Q3

REPORT INFORMATION
  Report Type: Spontaneous
  Country: US (occurrence: US)
  Receive Date: 20130730
  Receipt Date: 20130730
  Transmission Date: 20140515
  Serious: No
  Sender: FDA-Public Use
  Company Number: US-ABBOTT-13P-163-1086372-00

PATIENT
  Age: 53 Year
  Sex: Female
  Weight: 96.25 kg

DRUGS (5)
  1. NIASPAN (COATED) [Suspect]
     Indication: BLOOD CHOLESTEROL INCREASED
     Dates: start: 20130415
  2. PREVASTATIN [Concomitant]
     Indication: BLOOD CHOLESTEROL INCREASED
  3. METFORMIN [Concomitant]
     Indication: DIABETES MELLITUS
  4. SYMBICORT [Concomitant]
     Indication: ASTHMA
  5. ATIVAN [Concomitant]
     Indication: ANXIETY

REACTIONS (2)
  - Erythema [Recovered/Resolved]
  - Pruritus [Recovered/Resolved]
